FAERS Safety Report 17020467 (Version 1)
Quarter: 2019Q4

REPORT INFORMATION
  Report Type: Spontaneous
  Country: US (occurrence: US)
  Receive Date: 20191005
  Receipt Date: 20191005
  Transmission Date: 20200122
  Serious: Yes (Hospitalization)
  Sender: FDA-Public Use
  Company Number: None

PATIENT
  Age: 21 Year
  Sex: Male
  Weight: 122.9 kg

DRUGS (3)
  1. IFOSFAMIDE. [Suspect]
     Active Substance: IFOSFAMIDE
     Dates: end: 20190919
  2. CISPLATIN. [Suspect]
     Active Substance: CISPLATIN
     Dates: end: 20190919
  3. TAXOL [Suspect]
     Active Substance: PACLITAXEL
     Dates: end: 20190916

REACTIONS (7)
  - Blood culture positive [None]
  - Tachycardia [None]
  - Staphylococcus test positive [None]
  - Blood creatinine increased [None]
  - Pyrexia [None]
  - Hypotension [None]
  - Toxicity to various agents [None]

NARRATIVE: CASE EVENT DATE: 20190920
